APPROVED DRUG PRODUCT: DOXEPIN HYDROCHLORIDE
Active Ingredient: DOXEPIN HYDROCHLORIDE
Strength: EQ 6MG BASE
Dosage Form/Route: TABLET;ORAL
Application: A202337 | Product #002 | TE Code: AB
Applicant: RK PHARMA INC
Approved: Jan 20, 2016 | RLD: No | RS: No | Type: RX